FAERS Safety Report 4307550-7 (Version None)
Quarter: 2004Q1

REPORT INFORMATION
  Report Type: 
  Country: None (occurrence: None)
  Receive Date: 20040226
  Receipt Date: 20040213
  Transmission Date: 20041129
  Serious: Yes (Hospitalization)
  Sender: FDA-Public Use
  Company Number: 2002062761

PATIENT
  Age: 72 Year
  Sex: Female
  Weight: 86 kg

DRUGS (1)
  1. NEURONTIN [Suspect]
     Indication: DIABETIC NEUROPATHY
     Dosage: 800 MG (400 MG, BID), UNKNOWN
     Dates: start: 20020618

REACTIONS (2)
  - HEPATIC FAILURE [None]
  - NECROSIS [None]
